FAERS Safety Report 20508706 (Version 7)
Quarter: 2023Q1

REPORT INFORMATION
  Report Type: Report from Study
  Country: US (occurrence: US)
  Receive Date: 20220223
  Receipt Date: 20230118
  Transmission Date: 20230418
  Serious: Yes (Hospitalization, Other)
  Sender: FDA-Public Use
  Company Number: US-NOVARTISTESTPH-NVSC2022US041225

PATIENT
  Sex: Female
  Weight: 95.7 kg

DRUGS (2)
  1. ENTRESTO [Suspect]
     Active Substance: SACUBITRIL\VALSARTAN
     Indication: Cardiac failure chronic
     Dosage: 200 MG, BID (97/103 MG)
     Route: 048
     Dates: start: 2017
  2. ENTRESTO [Suspect]
     Active Substance: SACUBITRIL\VALSARTAN
     Indication: Cardiac failure
     Dosage: 200 MG, BID (97/103 MG)
     Route: 048
     Dates: start: 2018

REACTIONS (14)
  - Herpes zoster [Recovered/Resolved]
  - Periorbital cellulitis [Unknown]
  - Cough [Recovering/Resolving]
  - Back pain [Unknown]
  - Memory impairment [Unknown]
  - Muscle spasms [Recovering/Resolving]
  - Sinusitis [Recovered/Resolved]
  - Weight fluctuation [Recovering/Resolving]
  - Depression [Recovering/Resolving]
  - COVID-19 [Recovered/Resolved]
  - Weight decreased [Recovering/Resolving]
  - Anxiety [Not Recovered/Not Resolved]
  - Medical device discomfort [Recovered/Resolved]
  - Product dose omission in error [Unknown]

NARRATIVE: CASE EVENT DATE: 20180101
